FAERS Safety Report 8218688-6 (Version None)
Quarter: 2012Q1

REPORT INFORMATION
  Report Type: 
  Country: None (occurrence: None)
  Receive Date: 20120319
  Receipt Date: 20120307
  Transmission Date: 20120608
  Serious: Yes (Hospitalization, Other)
  Sender: FDA-Public Use
  Company Number: PHHY2012FR005090

PATIENT
  Sex: Male

DRUGS (12)
  1. VALSARTAN [Suspect]
     Indication: HYPERTENSION
     Dosage: 1 DF, DAILY
     Route: 048
     Dates: end: 20110803
  2. LASIX [Interacting]
     Dosage: DOSE REDUCED
  3. PLAVIX [Concomitant]
  4. PRAVIGARD PAC (COPACKAGED) [Concomitant]
  5. TANGANIL [Concomitant]
  6. DIGOXIN [Concomitant]
     Indication: MYOCARDIAL ISCHAEMIA
     Dates: end: 20110803
  7. CETIRIZINE HCL [Concomitant]
  8. NITROGLYCERIN [Interacting]
     Indication: MYOCARDIAL ISCHAEMIA
     Dosage: 1 DF, (10 MG/ 24 H) DAILY
     Route: 062
     Dates: end: 20110803
  9. LASIX [Interacting]
     Indication: HYPERTENSION
     Dosage: 60 MG, (40MG IN THE MORNING AND 20MG IN THE EVENING) DAILY
     Route: 048
  10. RASILEZ HCT [Interacting]
     Indication: HYPERTENSION
     Dosage: 1 DF, DAILY
     Route: 048
     Dates: end: 20110803
  11. ALFUZOSIN LP [Concomitant]
  12. ZOPICLONE [Concomitant]

REACTIONS (13)
  - DIZZINESS [None]
  - HYPOKALAEMIA [None]
  - CREATININE RENAL CLEARANCE DECREASED [None]
  - VISION BLURRED [None]
  - HEART RATE INCREASED [None]
  - MALAISE [None]
  - ATRIOVENTRICULAR BLOCK FIRST DEGREE [None]
  - BUNDLE BRANCH BLOCK [None]
  - DRUG INTERACTION [None]
  - ORTHOSTATIC HYPOTENSION [None]
  - VENTRICULAR EXTRASYSTOLES [None]
  - RENAL FAILURE [None]
  - PHOSPHENES [None]
